FAERS Safety Report 9451476 (Version 1)
Quarter: 2013Q3

REPORT INFORMATION
  Report Type: Spontaneous
  Country: US (occurrence: US)
  Receive Date: 20130810
  Receipt Date: 20130810
  Transmission Date: 20140515
  Serious: No
  Sender: FDA-Public Use
  Company Number: US-B.I. PHARMACEUTICALS,INC./RIDGEFIELD-2013-BI-23549BP

PATIENT
  Age: 55 Year
  Sex: Female
  Weight: 79 kg

DRUGS (4)
  1. MIRAPEX [Suspect]
     Indication: PARKINSON^S DISEASE
     Dosage: 4.5 MG
     Route: 048
     Dates: start: 2010
  2. AZILECT [Concomitant]
     Indication: PARKINSON^S DISEASE
     Dosage: 1 MG
     Route: 048
  3. ARMOUR THYROID [Concomitant]
     Indication: HYPOTHYROIDISM
     Dosage: 90 MCG
     Route: 048
  4. CALCIUM [Concomitant]
     Route: 048

REACTIONS (3)
  - Nausea [Recovered/Resolved]
  - Vomiting [Recovered/Resolved]
  - Parkinson^s disease [Recovered/Resolved]
